FAERS Safety Report 20609447 (Version 3)
Quarter: 2022Q3

REPORT INFORMATION
  Report Type: Other
  Country: US (occurrence: None)
  Receive Date: 20220318
  Receipt Date: 20220707
  Transmission Date: 20221027
  Serious: Yes (Hospitalization)
  Sender: FDA-Public Use
  Company Number: US-ROCHE-2690186

PATIENT
  Sex: Female
  Weight: 81.720 kg

DRUGS (9)
  1. OCREVUS [Suspect]
     Active Substance: OCRELIZUMAB
     Indication: Secondary progressive multiple sclerosis
     Dosage: 300 MG AT DAY 1 AND DAY 15?ON 30/OCT/2018, 21/OCT/2019 AND 03/JUL/2020, RECEIVED OCRELIZUMAB OF AN U
     Route: 042
     Dates: start: 20181016
  2. OCREVUS [Suspect]
     Active Substance: OCRELIZUMAB
     Indication: Relapsing multiple sclerosis
  3. ATENOLOL [Concomitant]
     Active Substance: ATENOLOL
     Indication: Heart rate irregular
     Dosage: STARTED 20 TO 30 YEARS AGO
     Route: 048
  4. ATENOLOL [Concomitant]
     Active Substance: ATENOLOL
     Indication: Palpitations
  5. ATENOLOL [Concomitant]
     Active Substance: ATENOLOL
     Indication: Ventricular extrasystoles
  6. ATENOLOL [Concomitant]
     Active Substance: ATENOLOL
     Indication: Supraventricular extrasystoles
  7. LISINOPRIL [Concomitant]
     Active Substance: LISINOPRIL
     Indication: Hypertension
     Route: 048
     Dates: start: 2008
  8. TIZANIDINE [Concomitant]
     Active Substance: TIZANIDINE
     Indication: Muscle spasms
     Route: 048
  9. LYRICA [Concomitant]
     Active Substance: PREGABALIN
     Indication: Fibromyalgia
     Dosage: NEXT DOSE: 150 MG ONCE DAY AT BEDTIME
     Route: 048
     Dates: start: 2014

REACTIONS (11)
  - Muscle spasms [Not Recovered/Not Resolved]
  - Off label use [Unknown]
  - Pain [Recovered/Resolved]
  - COVID-19 [Recovering/Resolving]
  - Cough [Recovered/Resolved]
  - Abdominal discomfort [Recovered/Resolved]
  - Fatigue [Recovering/Resolving]
  - Memory impairment [Recovering/Resolving]
  - Clumsiness [Unknown]
  - Extremity contracture [Unknown]
  - Fall [Unknown]

NARRATIVE: CASE EVENT DATE: 20190101
